FAERS Safety Report 10259517 (Version 1)
Quarter: 2014Q2

REPORT INFORMATION
  Report Type: Spontaneous
  Country: FR (occurrence: FR)
  Receive Date: 20140625
  Receipt Date: 20140625
  Transmission Date: 20141212
  Serious: Yes (Other)
  Sender: FDA-Public Use
  Company Number: FR-TEVA-489480ISR

PATIENT
  Age: 17 Year
  Sex: Female

DRUGS (3)
  1. IBUPROFEN [Suspect]
     Indication: PAIN
     Route: 065
     Dates: start: 201302
  2. IBUPROFEN [Suspect]
     Indication: PAIN
     Route: 065
     Dates: start: 201304
  3. MIRTAZAPINE [Concomitant]
     Indication: MAJOR DEPRESSION
     Dosage: 15MG/DAY
     Route: 065
     Dates: start: 201303

REACTIONS (4)
  - Substance abuse [Unknown]
  - Withdrawal syndrome [Unknown]
  - Drug dependence [Unknown]
  - Headache [Unknown]
